FAERS Safety Report 16420912 (Version 1)
Quarter: 2019Q2

REPORT INFORMATION
  Report Type: Spontaneous
  Country: US (occurrence: US)
  Receive Date: 20190612
  Receipt Date: 20190612
  Transmission Date: 20190711
  Serious: Yes (Hospitalization, Other)
  Sender: FDA-Public Use
  Company Number: US-BIOCODEX SA-201900455

PATIENT
  Age: 10 Year
  Sex: Female

DRUGS (1)
  1. DIACOMIT [Suspect]
     Active Substance: STIRIPENTOL
     Indication: PRODUCT USED FOR UNKNOWN INDICATION
     Dosage: 500MG IN THE MORNING AND MIDDAY DILUTED IN 10ML WATER750MG IN THE EVENING DILUTED IN 15ML OF WATER
     Route: 048
     Dates: start: 20190205

REACTIONS (2)
  - Emergency care [Unknown]
  - Product use in unapproved indication [Unknown]

NARRATIVE: CASE EVENT DATE: 20190528
